FAERS Safety Report 23263610 (Version 2)
Quarter: 2024Q1

REPORT INFORMATION
  Report Type: Spontaneous
  Country: US (occurrence: US)
  Receive Date: 20231205
  Receipt Date: 20240219
  Transmission Date: 20240410
  Serious: No
  Sender: FDA-Public Use
  Company Number: US-BRISTOL-MYERS SQUIBB COMPANY-2023-175695

PATIENT
  Age: 88 Year
  Sex: Female
  Weight: 80.74 kg

DRUGS (2)
  1. POMALYST [Suspect]
     Active Substance: POMALIDOMIDE
     Indication: Plasma cell myeloma
     Route: 048
  2. POMALYST [Suspect]
     Active Substance: POMALIDOMIDE
     Dosage: 3WKSON, 1WKOFF
     Route: 048

REACTIONS (3)
  - Rash [Unknown]
  - Fungal infection [Unknown]
  - Fatigue [Unknown]
